FAERS Safety Report 4951177-0 (Version None)
Quarter: 2006Q1

REPORT INFORMATION
  Report Type: 
  Country: None (occurrence: None)
  Receive Date: 20060315
  Receipt Date: 20060223
  Transmission Date: 20060701
  Serious: Yes (Life-Threatening, Hospitalization)
  Sender: FDA-Public Use
  Company Number: DE200601004659

PATIENT
  Sex: Female

DRUGS (5)
  1. CYMBALTA [Suspect]
     Indication: DEPRESSION
     Dosage: 60 MG
     Dates: start: 20060125, end: 20060125
  2. ST. JOHN'S WORT ^HERRON^ (HYPERICUM PERFORATUM) [Concomitant]
  3. BETA BLOCKING AGENTS [Concomitant]
  4. DIOVAN [Concomitant]
  5. SIMVASTATIN [Concomitant]

REACTIONS (4)
  - BRAIN OEDEMA [None]
  - CEREBRAL CYST [None]
  - LOSS OF CONSCIOUSNESS [None]
  - MALAISE [None]
